FAERS Safety Report 11001559 (Version 1)
Quarter: 2015Q2

REPORT INFORMATION
  Report Type: Spontaneous
  Country: FR (occurrence: FR)
  Receive Date: 20150408
  Receipt Date: 20150408
  Transmission Date: 20150821
  Serious: Yes (Hospitalization)
  Sender: FDA-Public Use
  Company Number: FR-INCYTE CORPORATION-2015IN001382

PATIENT
  Age: 63 Year
  Sex: Male

DRUGS (9)
  1. HYDREA [Suspect]
     Active Substance: HYDROXYUREA
     Dosage: 2 G PER DAY
     Route: 048
     Dates: start: 20141114, end: 20141220
  2. KARDEGIC [Concomitant]
     Active Substance: ASPIRIN LYSINE
     Indication: PRODUCT USED FOR UNKNOWN INDICATION
     Dosage: 75 MG, POWDER FOR ORAL SOLUTION IN SACHET DOSE, 1 DAY
     Route: 048
     Dates: start: 20140628
  3. JAKAFI [Suspect]
     Active Substance: RUXOLITINIB
     Indication: MYELOFIBROSIS
     Dosage: 5 MG, 2 DAYS
     Route: 048
     Dates: start: 20140522, end: 201407
  4. ARACYTINE [Concomitant]
     Active Substance: CYTARABINE
     Indication: PRODUCT USED FOR UNKNOWN INDICATION
     Dosage: 20 MG, 2 DAYS
     Route: 058
     Dates: start: 20141203
  5. HYDREA [Suspect]
     Active Substance: HYDROXYUREA
     Indication: MYELOFIBROSIS
     Dosage: 1 G PER DAY
     Route: 048
     Dates: start: 201311
  6. HYDREA [Suspect]
     Active Substance: HYDROXYUREA
     Dosage: 2 G PER DAY
     Route: 048
     Dates: start: 20140522, end: 201407
  7. HYDREA [Suspect]
     Active Substance: HYDROXYUREA
     Dosage: 1 G PER DAY
     Route: 048
     Dates: start: 20140814
  8. ARACYTINE [Concomitant]
     Active Substance: CYTARABINE
     Dosage: UNK
  9. JAKAFI [Suspect]
     Active Substance: RUXOLITINIB
     Dosage: 5 MG EVERY OTHER DAY
     Route: 048
     Dates: start: 20141012, end: 20141114

REACTIONS (3)
  - Melaena [Recovered/Resolved]
  - Thrombocytopenia [Recovered/Resolved]
  - Thrombocytopenic purpura [Recovered/Resolved]

NARRATIVE: CASE EVENT DATE: 20140625
